FAERS Safety Report 7305293-9 (Version None)
Quarter: 2011Q1

REPORT INFORMATION
  Report Type: 
  Country: None (occurrence: None)
  Receive Date: 20110222
  Receipt Date: 20110221
  Transmission Date: 20110831
  Serious: Yes (Hospitalization)
  Sender: FDA-Public Use
  Company Number: IT-PFIZER INC-2011034977

PATIENT
  Age: 78 Year
  Sex: Male

DRUGS (4)
  1. ENAPREN [Concomitant]
  2. CORDARONE [Concomitant]
  3. SUTENT [Suspect]
     Indication: RENAL CANCER METASTATIC
     Dosage: 25 MG, 1X/DAY
     Route: 048
     Dates: start: 20101130, end: 20110105
  4. LORAZEPAM [Concomitant]

REACTIONS (3)
  - MUSCULAR WEAKNESS [None]
  - CEREBRAL HAEMORRHAGE [None]
  - HEADACHE [None]
